FAERS Safety Report 19965438 (Version 1)
Quarter: 2021Q4

REPORT INFORMATION
  Report Type: Spontaneous
  Country: FR (occurrence: FR)
  Receive Date: 20211018
  Receipt Date: 20211018
  Transmission Date: 20220303
  Serious: Yes (Hospitalization)
  Sender: FDA-Public Use
  Company Number: FR-AFSSAPS-AVPO20211796

PATIENT
  Age: 16 Year
  Sex: Male
  Weight: 91 kg

DRUGS (1)
  1. NITROUS OXIDE [Suspect]
     Active Substance: NITROUS OXIDE
     Indication: Drug abuse
     Route: 055

REACTIONS (5)
  - Anaemia macrocytic [Recovering/Resolving]
  - Hyperhomocysteinaemia [Recovering/Resolving]
  - Vitamin B12 decreased [Recovering/Resolving]
  - Subacute combined cord degeneration [Recovering/Resolving]
  - Pulmonary embolism [Recovering/Resolving]

NARRATIVE: CASE EVENT DATE: 20210617
